FAERS Safety Report 13236413 (Version 1)
Quarter: 2017Q1

REPORT INFORMATION
  Report Type: Spontaneous
  Country: US (occurrence: US)
  Receive Date: 20170215
  Receipt Date: 20170215
  Transmission Date: 20170428
  Serious: No
  Sender: FDA-Public Use
  Company Number: US-BRISTOL-MYERS SQUIBB COMPANY-BMS-2017-011355

PATIENT
  Sex: Female
  Weight: 86.18 kg

DRUGS (1)
  1. OPDIVO [Suspect]
     Active Substance: NIVOLUMAB
     Indication: METASTATIC MALIGNANT MELANOMA
     Dosage: UNK, Q2WK
     Route: 042
     Dates: start: 20160329

REACTIONS (5)
  - Skin infection [Unknown]
  - Skin disorder [Unknown]
  - Pruritus [Unknown]
  - Skin atrophy [Unknown]
  - Pain of skin [Unknown]
